FAERS Safety Report 8572509-0 (Version None)
Quarter: 2012Q2

REPORT INFORMATION
  Report Type: 
  Country: None (occurrence: None)
  Receive Date: 20120419
  Receipt Date: 20120419
  Transmission Date: 20120825
  Serious: Yes (Hospitalization, Other)
  Sender: FDA-Public Use
  Company Number: ALL1-2011-03051

PATIENT
  Age: 37 Year
  Sex: Male
  Weight: 99.8 kg

DRUGS (1)
  1. LIALDA [Suspect]
     Indication: INFLAMMATORY BOWEL DISEASE
     Dosage: 1.2 G, ORAL
     Route: 048
     Dates: start: 20110601, end: 20110801

REACTIONS (2)
  - OFF LABEL USE [None]
  - PERICARDITIS [None]
